FAERS Safety Report 25214288 (Version 1)
Quarter: 2025Q2

REPORT INFORMATION
  Report Type: Spontaneous
  Country: US (occurrence: US)
  Receive Date: 20250418
  Receipt Date: 20250418
  Transmission Date: 20250716
  Serious: Yes (Hospitalization, Other)
  Sender: Haleon PLC
  Company Number: US-HALEON-2238435

PATIENT
  Age: 18 Year

DRUGS (2)
  1. IBUPROFEN [Suspect]
     Active Substance: IBUPROFEN
     Indication: Product used for unknown indication
  2. IRON [Suspect]
     Active Substance: IRON
     Indication: Product used for unknown indication

REACTIONS (8)
  - Hepatic function abnormal [Recovered/Resolved]
  - Gastrointestinal disorder [Recovered/Resolved]
  - Generalised tonic-clonic seizure [Recovered/Resolved]
  - Intentional overdose [Unknown]
  - Hyperammonaemia [Recovered/Resolved]
  - Gastrointestinal haemorrhage [Recovered/Resolved]
  - Necrosis [Recovered/Resolved]
  - Acute hepatic failure [Recovered/Resolved]
